FAERS Safety Report 13801348 (Version 6)
Quarter: 2017Q4

REPORT INFORMATION
  Report Type: Report from Study
  Country: FR (occurrence: FR)
  Receive Date: 20170727
  Receipt Date: 20171031
  Transmission Date: 20180320
  Serious: Yes (Life-Threatening, Hospitalization, Other)
  Sender: FDA-Public Use
  Company Number: FR-BRISTOL-MYERS SQUIBB COMPANY-BMS-2017-066608

PATIENT
  Age: 48 Year
  Sex: Male
  Weight: 60 kg

DRUGS (14)
  1. LASILIX                            /00032601/ [Suspect]
     Active Substance: FUROSEMIDE
     Indication: ASCITES
     Dosage: 40 MG, BID
     Route: 065
     Dates: start: 20120923
  2. ROCEPHINE [Concomitant]
     Active Substance: CEFTRIAXONE SODIUM
     Indication: ANTIBIOTIC THERAPY
     Dosage: 2 G, QD
     Route: 065
     Dates: start: 20120924, end: 2013
  3. ENTECAVIR. [Suspect]
     Active Substance: ENTECAVIR
     Indication: HEPATITIS B
     Dosage: 0.5 MG, QD
     Route: 065
     Dates: start: 201205
  4. ALDACTONE [Concomitant]
     Active Substance: SPIRONOLACTONE
     Indication: ASCITES
     Dosage: 25 MG, QD
     Route: 065
     Dates: start: 20120403
  5. RIVOTRIL [Concomitant]
     Active Substance: CLONAZEPAM
     Indication: PRODUCT USED FOR UNKNOWN INDICATION
     Dosage: UNK
     Route: 065
     Dates: start: 20130726
  6. DIFFU K [Concomitant]
     Active Substance: POTASSIUM CHLORIDE
     Indication: HYPOKALAEMIA
     Dosage: 2 TAB, BID
     Route: 065
     Dates: start: 20120924
  7. KARDEGIC [Concomitant]
     Active Substance: ASPIRIN DL-LYSINE
     Indication: ANTICOAGULANT THERAPY
     Dosage: 75 MG, QD
     Route: 065
     Dates: start: 20130724, end: 2014
  8. NOROXINE [Concomitant]
     Active Substance: NORFLOXACIN
     Indication: ASCITES
     Dosage: 400 MG, QD
     Route: 065
     Dates: start: 20130206, end: 2013
  9. LEDERFOLINE [Concomitant]
     Active Substance: LEUCOVORIN CALCIUM
     Indication: PRODUCT USED FOR UNKNOWN INDICATION
     Dosage: 5 MG, QD
     Route: 065
     Dates: start: 20130726, end: 20131011
  10. INEXIUM                            /01479302/ [Concomitant]
     Active Substance: ESOMEPRAZOLE MAGNESIUM
     Indication: GASTROOESOPHAGEAL REFLUX DISEASE
     Dosage: 40 MG, QD
     Route: 065
     Dates: start: 20120924
  11. DELICAL BOISSON FRUITEE [Concomitant]
     Indication: VITAMIN SUPPLEMENTATION
     Dosage: UNK UNK, BID
     Route: 065
     Dates: start: 20130216, end: 2013
  12. ROVALCYTE [Concomitant]
     Active Substance: VALGANCICLOVIR HYDROCHLORIDE
     Indication: INFECTION
     Dosage: 450 MG, BID
     Route: 065
     Dates: start: 20130724
  13. FOLINORAL [Concomitant]
     Active Substance: LEUCOVORIN CALCIUM
     Indication: PRODUCT USED FOR UNKNOWN INDICATION
     Dosage: 25 MG, QD
     Route: 065
     Dates: start: 20130726
  14. DUPHALAC [Concomitant]
     Active Substance: LACTULOSE
     Indication: ASCITES
     Dosage: 1 DF, TID
     Route: 065
     Dates: start: 20120403

REACTIONS (23)
  - Urinary tract infection staphylococcal [Unknown]
  - General physical health deterioration [Unknown]
  - Confusional state [Unknown]
  - Melaena [Unknown]
  - Ascites [Unknown]
  - Hepatic encephalopathy [Recovered/Resolved]
  - Aspiration pleural cavity [Unknown]
  - Disorientation [Unknown]
  - Haematemesis [Unknown]
  - Cholecystitis chronic [Unknown]
  - Pneumonia [Unknown]
  - Hydrothorax [Unknown]
  - Hyponatraemia [Unknown]
  - Liver transplant [Unknown]
  - Portal hypertension [Unknown]
  - Oesophageal haemorrhage [Unknown]
  - Pleural effusion [Unknown]
  - Cerebral haemorrhage [Unknown]
  - Brain abscess [Unknown]
  - Pneumothorax [Unknown]
  - Hepatocellular carcinoma [Recovered/Resolved]
  - Psychomotor retardation [Unknown]
  - Varices oesophageal [Unknown]

NARRATIVE: CASE EVENT DATE: 2012
